FAERS Safety Report 9882980 (Version 1)
Quarter: 2014Q1

REPORT INFORMATION
  Report Type: Report from Study
  Country: DE (occurrence: DE)
  Receive Date: 20140208
  Receipt Date: 20140208
  Transmission Date: 20141002
  Serious: Yes (Hospitalization, Other)
  Sender: FDA-Public Use
  Company Number: DE-ROCHE-1344141

PATIENT
  Age: 38 Year
  Sex: Female

DRUGS (3)
  1. RITUXIMAB [Suspect]
     Indication: RHEUMATOID ARTHRITIS
     Route: 065
     Dates: start: 20130507
  2. METHOTREXATE [Suspect]
     Indication: PRODUCT USED FOR UNKNOWN INDICATION
     Route: 065
     Dates: start: 20130418, end: 20130418
  3. METHOTREXATE [Suspect]
     Route: 065
     Dates: start: 20130801, end: 20130801

REACTIONS (3)
  - Arthritis [Unknown]
  - Synovectomy [Unknown]
  - Synovial disorder [Unknown]
